FAERS Safety Report 15878861 (Version 1)
Quarter: 2019Q1

REPORT INFORMATION
  Report Type: Spontaneous
  Country: US (occurrence: US)
  Receive Date: 20190125
  Receipt Date: 20190125
  Transmission Date: 20190417
  Serious: Yes (Disabling, Other)
  Sender: FDA-Public Use
  Company Number: None

PATIENT
  Age: 33 Year
  Sex: Female
  Weight: 89.55 kg

DRUGS (2)
  1. PRILOSEC [Concomitant]
     Active Substance: OMEPRAZOLE MAGNESIUM
  2. CIPROFLOXACIN. [Suspect]
     Active Substance: CIPROFLOXACIN
     Indication: KIDNEY INFECTION
     Route: 048
     Dates: start: 20181012, end: 20181022

REACTIONS (5)
  - Neuropathy peripheral [None]
  - Tendonitis [None]
  - Anxiety [None]
  - Food allergy [None]
  - Depression [None]

NARRATIVE: CASE EVENT DATE: 20181025
